FAERS Safety Report 5147075-2 (Version None)
Quarter: 2006Q4

REPORT INFORMATION
  Report Type: 
  Country: None (occurrence: None)
  Receive Date: 20061103
  Receipt Date: 20061020
  Transmission Date: 20070319
  Serious: Yes (Other)
  Sender: FDA-Public Use
  Company Number: 2006US002347

PATIENT
  Age: 56 Year
  Sex: Female
  Weight: 39 kg

DRUGS (8)
  1. ADENOSCAN [Suspect]
     Indication: SCAN MYOCARDIAL PERFUSION
     Dosage: 14.04 MG, TOTAL DOSE, IV NOS
     Route: 042
     Dates: start: 20061012, end: 20061012
  2. DIGOXIN [Suspect]
     Indication: ATRIAL FIBRILLATION
     Dosage: 0.125 MG, ORAL
     Route: 048
     Dates: start: 20061005, end: 20061013
  3. CANDESARTAN CILEXETIL [Concomitant]
  4. AMLODIPINE BESYLATE [Concomitant]
  5. FALECALCITRIOL [Concomitant]
  6. LANSOPRAZOLE [Concomitant]
  7. REBAMIPIDE [Concomitant]
  8. WARFARIN SODIUM [Concomitant]

REACTIONS (3)
  - CHEST DISCOMFORT [None]
  - DRUG INTERACTION [None]
  - SINUS ARREST [None]
